FAERS Safety Report 8374922-3 (Version None)
Quarter: 2012Q2

REPORT INFORMATION
  Report Type: 
  Country: None (occurrence: None)
  Receive Date: 20120521
  Receipt Date: 20120515
  Transmission Date: 20120825
  Serious: Yes (Other)
  Sender: FDA-Public Use
  Company Number: US-AMGEN-USASP2010006978

PATIENT
  Age: 70 Year
  Sex: Female
  Weight: 62.8 kg

DRUGS (3)
  1. CYMBALTA [Concomitant]
     Indication: DEPRESSION
     Dosage: 60 MG, UNK
  2. WELLBUTRIN [Concomitant]
     Indication: DEPRESSION
     Dosage: UNK
  3. ENBREL [Suspect]
     Indication: RHEUMATOID ARTHRITIS
     Dosage: 50 MG, QWK
     Dates: end: 20110901

REACTIONS (11)
  - CYTOGENETIC ABNORMALITY [None]
  - MYELODYSPLASTIC SYNDROME [None]
  - ATRIAL SEPTAL DEFECT [None]
  - RHEUMATOID ARTHRITIS [None]
  - ATRIAL THROMBOSIS [None]
  - PANCYTOPENIA [None]
  - INTERNATIONAL NORMALISED RATIO ABNORMAL [None]
  - HAEMATOMA [None]
  - PULMONARY HAEMORRHAGE [None]
  - AORTIC CALCIFICATION [None]
  - ADRENAL ADENOMA [None]
